FAERS Safety Report 9447472 (Version 2)
Quarter: 2013Q3

REPORT INFORMATION
  Report Type: Spontaneous
  Country: US (occurrence: US)
  Receive Date: 20130808
  Receipt Date: 20130925
  Transmission Date: 20140515
  Serious: No
  Sender: FDA-Public Use
  Company Number: US-PFIZER INC-2013226916

PATIENT
  Age: 87 Year
  Sex: Female

DRUGS (3)
  1. REVATIO [Suspect]
     Indication: PULMONARY HYPERTENSION
     Dosage: 20 MG, 3X/DAY (TID)
  2. REVATIO [Suspect]
     Dosage: 40 MG, 3X/DAY (TID)
     Dates: start: 20130102
  3. REVATIO [Suspect]
     Dosage: 1 DF, 1X/DAY (CUT BACK ON HER MEDICATION TO ONE PER DAY )

REACTIONS (1)
  - Feeling abnormal [Unknown]
